FAERS Safety Report 6589092-1 (Version None)
Quarter: 2010Q1

REPORT INFORMATION
  Report Type: 
  Country: None (occurrence: None)
  Receive Date: 20100218
  Receipt Date: 20100210
  Transmission Date: 20100710
  Serious: Yes (Death)
  Sender: FDA-Public Use
  Company Number: GB-JNJFOC-20091107928

PATIENT
  Age: 41 Year
  Sex: Male

DRUGS (1)
  1. TRAMADOL [Suspect]
     Indication: BACK PAIN
     Route: 048

REACTIONS (3)
  - DEATH [None]
  - DRY MOUTH [None]
  - DYSPNOEA [None]
